FAERS Safety Report 10223825 (Version 1)
Quarter: 2014Q2

REPORT INFORMATION
  Report Type: Spontaneous
  Country: FR (occurrence: FR)
  Receive Date: 20140609
  Receipt Date: 20140609
  Transmission Date: 20141212
  Serious: Yes (Other)
  Sender: FDA-Public Use
  Company Number: FR-JNJFOC-20140516636

PATIENT
  Age: 39 Year
  Sex: Male

DRUGS (3)
  1. XEPLION [Suspect]
     Indication: SCHIZOPHRENIA
     Route: 030
     Dates: start: 201304
  2. DEPAKOTE [Concomitant]
     Indication: DYSTHYMIC DISORDER
     Route: 048
     Dates: start: 201306
  3. TERCIAN [Concomitant]
     Indication: DYSTHYMIC DISORDER
     Route: 048
     Dates: start: 2013

REACTIONS (2)
  - Induration [Not Recovered/Not Resolved]
  - Overdose [Unknown]
